FAERS Safety Report 16462572 (Version 1)
Quarter: 2019Q2

REPORT INFORMATION
  Report Type: Spontaneous
  Country: MX (occurrence: MX)
  Receive Date: 20190511
  Receipt Date: 20190511
  Transmission Date: 20190711
  Serious: Yes (Life-Threatening, Hospitalization)
  Sender: FDA-Public Use
  Company Number: None

PATIENT
  Age: 46 Year
  Sex: Female
  Weight: 90 kg

DRUGS (8)
  1. IBUPROFEN. [Concomitant]
     Active Substance: IBUPROFEN
  2. DIPHENIDOL [Concomitant]
     Active Substance: DIPHENIDOL
  3. RANITIDINE. [Concomitant]
     Active Substance: RANITIDINE
  4. GENTAMICIN. [Concomitant]
     Active Substance: GENTAMICIN
  5. PRIKENE [Concomitant]
  6. SERUM [Concomitant]
  7. DIPHENHYDRAMINE. [Concomitant]
     Active Substance: DIPHENHYDRAMINE
  8. ONDANSETRON [Suspect]
     Active Substance: ONDANSETRON
     Indication: PROPHYLAXIS OF NAUSEA AND VOMITING
     Route: 042
     Dates: start: 20190509, end: 20190509

REACTIONS (3)
  - Chest discomfort [None]
  - Intra-abdominal pressure increased [None]
  - Anaphylactic shock [None]

NARRATIVE: CASE EVENT DATE: 20190509
